FAERS Safety Report 10258211 (Version 2)
Quarter: 2014Q2

REPORT INFORMATION
  Report Type: Report from Study
  Country: US (occurrence: US)
  Receive Date: 20140625
  Receipt Date: 20140625
  Transmission Date: 20141212
  Serious: Yes (Hospitalization)
  Sender: FDA-Public Use
  Company Number: PHEH2014US009855

PATIENT
  Age: 53 Year
  Sex: Male

DRUGS (1)
  1. EXJADE [Suspect]
     Indication: HAEMOCHROMATOSIS
     Dosage: 1000 MG, QD
     Route: 048

REACTIONS (5)
  - Hypotension [Recovering/Resolving]
  - Renal failure [Unknown]
  - Renal function test abnormal [Unknown]
  - Ammonia increased [Unknown]
  - Malaise [Unknown]
